FAERS Safety Report 4471002-4 (Version None)
Quarter: 2004Q4

REPORT INFORMATION
  Report Type: 
  Country: None (occurrence: None)
  Receive Date: 20041011
  Receipt Date: 20040811
  Transmission Date: 20050328
  Serious: Yes (Other)
  Sender: FDA-Public Use
  Company Number: JP-ROCHE-377516

PATIENT
  Age: 77 Year
  Sex: Male
  Weight: 54.8 kg

DRUGS (4)
  1. PEGASYS [Suspect]
     Indication: HEPATITIS C
     Dosage: ADMINISTERED AT 10 AM.
     Route: 058
     Dates: start: 20040810
  2. AMLODIN [Concomitant]
     Indication: HYPERTENSION
     Dosage: AMLODIPINE BESILATE
     Route: 048
     Dates: start: 20021212
  3. LENDORMIN [Concomitant]
     Route: 048
     Dates: start: 19991109
  4. URSO [Concomitant]
     Dosage: GENERIC REPORTED TO BE URSODESOXYCHOLIC
     Route: 048
     Dates: start: 20011030

REACTIONS (1)
  - ANGLE CLOSURE GLAUCOMA [None]
